FAERS Safety Report 9654378 (Version 2)
Quarter: 2014Q1

REPORT INFORMATION
  Report Type: Spontaneous
  Country: GB (occurrence: GB)
  Receive Date: 20131029
  Receipt Date: 20140210
  Transmission Date: 20141002
  Serious: Yes (Other)
  Sender: FDA-Public Use
  Company Number: GB-MYLANLABS-2013S1023418

PATIENT
  Age: 71 Year
  Sex: Male
  Weight: 77 kg

DRUGS (2)
  1. SIMVASTATIN [Suspect]
     Indication: PRODUCT USED FOR UNKNOWN INDICATION
     Route: 048
     Dates: start: 20130705
  2. OLANZAPINE [Suspect]
     Indication: SCHIZOPHRENIA

REACTIONS (2)
  - Psychotic disorder [Recovered/Resolved]
  - Drug interaction [Unknown]
